FAERS Safety Report 14411662 (Version 3)
Quarter: 2018Q3

REPORT INFORMATION
  Report Type: Spontaneous
  Country: US (occurrence: US)
  Receive Date: 20180119
  Receipt Date: 20180801
  Transmission Date: 20181010
  Serious: Yes (Other)
  Sender: FDA-Public Use
  Company Number: US-PFIZER INC-2018024437

PATIENT
  Age: 60 Year
  Sex: Female
  Weight: 45.35 kg

DRUGS (2)
  1. XANAX [Suspect]
     Active Substance: ALPRAZOLAM
     Indication: ANXIETY
     Dosage: 12 MG, DAILY
     Route: 048
  2. XANAX [Suspect]
     Active Substance: ALPRAZOLAM
     Indication: PANIC ATTACK
     Dosage: 0.25 MG, 3X/DAY
     Route: 048
     Dates: start: 1988

REACTIONS (4)
  - Nervous system disorder [Unknown]
  - Withdrawal syndrome [Unknown]
  - Drug dependence [Unknown]
  - Overdose [Unknown]
